FAERS Safety Report 14368611 (Version 1)
Quarter: 2018Q1

REPORT INFORMATION
  Report Type: Not Available
  Country: US (occurrence: US)
  Receive Date: 20180109
  Receipt Date: 20180109
  Transmission Date: 20180509
  Serious: Yes (Hospitalization)
  Sender: FDA-Public Use
  Company Number: US-NEUROCRINE BIOSCIENCES INC.-2017NBI02124

PATIENT
  Age: 74 Year
  Sex: Female

DRUGS (16)
  1. INGREZZA [Suspect]
     Active Substance: VALBENAZINE
     Route: 048
     Dates: start: 20171031, end: 20171208
  2. DEPAKOTE [Concomitant]
     Active Substance: DIVALPROEX SODIUM
  3. LASIX [Concomitant]
     Active Substance: FUROSEMIDE
  4. ALTACE [Concomitant]
     Active Substance: RAMIPRIL
  5. LABETALOL [Concomitant]
     Active Substance: LABETALOL\LABETALOL HYDROCHLORIDE
  6. INGREZZA [Suspect]
     Active Substance: VALBENAZINE
     Indication: PRODUCT USED FOR UNKNOWN INDICATION
     Route: 048
     Dates: start: 20171024, end: 20171030
  7. METFORMIN [Concomitant]
     Active Substance: METFORMIN HYDROCHLORIDE
  8. RISPERDAL [Concomitant]
     Active Substance: RISPERIDONE
  9. ARTIFICIAL TEARS [Concomitant]
     Active Substance: GLYCERIN\HYPROMELLOSES\POLYETHYLENE GLYCOL 400
  10. SYNTHROID [Concomitant]
     Active Substance: LEVOTHYROXINE SODIUM
  11. PROTONIX [Concomitant]
     Active Substance: PANTOPRAZOLE SODIUM
  12. XALATAN [Concomitant]
     Active Substance: LATANOPROST
  13. LOPERAMIDE [Concomitant]
     Active Substance: LOPERAMIDE
  14. LOPRESSOR [Concomitant]
     Active Substance: METOPROLOL TARTRATE
  15. LOSARTAN. [Concomitant]
     Active Substance: LOSARTAN
  16. TUSSIN [Concomitant]
     Active Substance: GUAIFENESIN

REACTIONS (1)
  - Hospitalisation [Recovered/Resolved]

NARRATIVE: CASE EVENT DATE: 20171208
